FAERS Safety Report 16906173 (Version 3)
Quarter: 2020Q4

REPORT INFORMATION
  Report Type: Other
  Country: US (occurrence: US)
  Receive Date: 20191011
  Receipt Date: 20201119
  Transmission Date: 20210113
  Serious: No
  Sender: FDA-Public Use
  Company Number: US-ROCHE-2429218

PATIENT
  Sex: Female

DRUGS (2)
  1. OCREVUS [Suspect]
     Active Substance: OCRELIZUMAB
     Indication: MULTIPLE SCLEROSIS
     Dosage: 300MG/10ML
     Route: 042
     Dates: start: 20180501, end: 20180515
  2. OCREVUS [Suspect]
     Active Substance: OCRELIZUMAB
     Dosage: SUBSEQUENT DOSES OF OCRELIZUMAB: 23/APR/2019, 10/SEP/2019, 29/OCT/2019, 01/MAY/2020, 03/NOV/2020
     Route: 042
     Dates: start: 20181022

REACTIONS (3)
  - Dry mouth [Unknown]
  - Oral fungal infection [Unknown]
  - Drug ineffective [Unknown]
